FAERS Safety Report 5575251-3 (Version None)
Quarter: 2007Q4

REPORT INFORMATION
  Report Type: 
  Country: None (occurrence: None)
  Receive Date: 20071221
  Receipt Date: 20071212
  Transmission Date: 20080405
  Serious: Yes (Hospitalization)
  Sender: FDA-Public Use
  Company Number: 231207J07USA

PATIENT
  Age: 51 Year
  Sex: Female

DRUGS (1)
  1. REBIF [Suspect]
     Indication: MULTIPLE SCLEROSIS
     Dates: start: 20050429, end: 20071008

REACTIONS (4)
  - CLOSTRIDIAL INFECTION [None]
  - ERYTHEMA [None]
  - MASS [None]
  - PAIN [None]
